FAERS Safety Report 6045779-0 (Version None)
Quarter: 2009Q1

REPORT INFORMATION
  Report Type: 
  Country: None (occurrence: None)
  Receive Date: 20090121
  Receipt Date: 20090120
  Transmission Date: 20090719
  Serious: Yes (Other)
  Sender: FDA-Public Use
  Company Number: DE-RB-008489-09

PATIENT
  Sex: Male

DRUGS (1)
  1. SUBUTEX [Suspect]
     Dosage: 4-8 MG DAILY
     Route: 060

REACTIONS (3)
  - BLOOD PRESSURE INCREASED [None]
  - CONVULSION [None]
  - EXPIRED DRUG ADMINISTERED [None]
